FAERS Safety Report 6482415-3 (Version None)
Quarter: 2009Q4

REPORT INFORMATION
  Report Type: 
  Country: None (occurrence: None)
  Receive Date: 20091208
  Receipt Date: 20090512
  Transmission Date: 20100525
  Serious: No
  Sender: FDA-Public Use
  Company Number: US-AMGEN-TCS346781

PATIENT
  Sex: Female

DRUGS (3)
  1. ENBREL [Suspect]
     Indication: RHEUMATOID ARTHRITIS
     Route: 058
     Dates: start: 20081225
  2. SULFASALAZINE [Concomitant]
  3. METHOTREXATE [Concomitant]

REACTIONS (3)
  - MASS [None]
  - PROCEDURAL COMPLICATION [None]
  - PURULENT DISCHARGE [None]
